FAERS Safety Report 6771879-3 (Version None)
Quarter: 2010Q2

REPORT INFORMATION
  Report Type: 
  Country: None (occurrence: None)
  Receive Date: 20100616
  Receipt Date: 20100318
  Transmission Date: 20101027
  Serious: No
  Sender: FDA-Public Use
  Company Number: US-ASTRAZENECA-2010SE12095

PATIENT
  Age: 72 Year
  Sex: Female

DRUGS (1)
  1. ENTOCORT EC [Suspect]
     Route: 048
     Dates: start: 20100101

REACTIONS (2)
  - HYPOCOAGULABLE STATE [None]
  - PURPLE GLOVE SYNDROME [None]
